FAERS Safety Report 12336582 (Version 4)
Quarter: 2016Q2

REPORT INFORMATION
  Report Type: Spontaneous
  Country: US (occurrence: US)
  Receive Date: 20160505
  Receipt Date: 20160520
  Transmission Date: 20160815
  Serious: Yes (Other)
  Sender: FDA-Public Use
  Company Number: US-CIPLA LTD.-2016US04598

PATIENT

DRUGS (2)
  1. TOPIRAMATE. [Suspect]
     Active Substance: TOPIRAMATE
     Dosage: 25 MG, BID
     Route: 048
     Dates: start: 201603
  2. GABAPENTIN. [Suspect]
     Active Substance: GABAPENTIN
     Dosage: 300 MG, QD
     Route: 048
     Dates: start: 201603

REACTIONS (5)
  - Lung disorder [Not Recovered/Not Resolved]
  - Lip swelling [Not Recovered/Not Resolved]
  - Nasal oedema [Not Recovered/Not Resolved]
  - Decreased immune responsiveness [Not Recovered/Not Resolved]
  - Hypersensitivity [Not Recovered/Not Resolved]
